FAERS Safety Report 13264462 (Version 1)
Quarter: 2017Q1

REPORT INFORMATION
  Report Type: Spontaneous
  Country: US (occurrence: US)
  Receive Date: 20170223
  Receipt Date: 20170223
  Transmission Date: 20170428
  Serious: No
  Sender: FDA-Public Use
  Company Number: US-LANTHEUS-LMI-2016-04073

PATIENT
  Age: 65 Year
  Sex: Female
  Weight: 127 kg

DRUGS (1)
  1. DEFINITY [Suspect]
     Active Substance: PERFLUTREN
     Indication: ECHOCARDIOGRAM
     Dosage: 9 ML (1.5 ML DEFINITY PREPARED IN 8.5 NORMAL SALINE), SINGLE
     Route: 040
     Dates: start: 20160926, end: 20160926

REACTIONS (6)
  - Abdominal distension [Recovered/Resolved]
  - Drug hypersensitivity [Recovered/Resolved]
  - Hypotension [Recovered/Resolved]
  - General physical health deterioration [Recovered/Resolved]
  - Gastrointestinal sounds abnormal [Recovered/Resolved]
  - Bronchospasm [Recovering/Resolving]

NARRATIVE: CASE EVENT DATE: 20160926
